FAERS Safety Report 5806788-7 (Version None)
Quarter: 2008Q3

REPORT INFORMATION
  Report Type: 
  Country: None (occurrence: None)
  Receive Date: 20080711
  Receipt Date: 20080704
  Transmission Date: 20090109
  Serious: Yes (Life-Threatening, Hospitalization)
  Sender: FDA-Public Use
  Company Number: JP-JNJFOC-20080605303

PATIENT
  Sex: Male

DRUGS (3)
  1. RISPERDAL [Suspect]
     Indication: DRUG USE FOR UNKNOWN INDICATION
     Route: 048
  2. DEPAS [Suspect]
     Indication: SUICIDE ATTEMPT
     Route: 048
  3. PAXIL [Suspect]
     Indication: SUICIDE ATTEMPT
     Route: 048

REACTIONS (3)
  - COMA [None]
  - MULTIPLE DRUG OVERDOSE [None]
  - SUICIDE ATTEMPT [None]
